FAERS Safety Report 8992210 (Version 2)
Quarter: 2013Q1

REPORT INFORMATION
  Report Type: Report from Study
  Country: JP (occurrence: JP)
  Receive Date: 20121231
  Receipt Date: 20130114
  Transmission Date: 20140127
  Serious: Yes (Hospitalization)
  Sender: FDA-Public Use
  Company Number: JP-ABBOTT-12P-087-1028361-00

PATIENT
  Age: 38 Year
  Sex: Male

DRUGS (12)
  1. NORVIR [Suspect]
     Indication: HIV INFECTION
     Route: 048
     Dates: start: 20090519, end: 20110711
  2. NORVIR [Suspect]
     Indication: HIV INFECTION
     Route: 048
     Dates: start: 20110712
  3. TRUVADA [Suspect]
     Indication: HIV INFECTION
     Route: 048
     Dates: start: 20110401
  4. PREZISTA [Suspect]
     Indication: HIV INFECTION
     Route: 048
     Dates: start: 20110401, end: 20110425
  5. PREZISTA [Suspect]
     Dates: start: 20110426
  6. KETOPROFEN [Concomitant]
     Indication: HAEMOPHILIA
     Dosage: AT BED TIME
     Dates: start: 20110401
  7. COAGULATION FACTOR VIII [Concomitant]
     Indication: HAEMOPHILIA
     Dates: start: 20110401, end: 20110630
  8. COAGULATION FACTOR VIII [Concomitant]
     Indication: HAEMARTHROSIS
     Dosage: 1000-2000 UNIT
     Dates: start: 20110701, end: 20111101
  9. COAGULATION FACTOR VIII [Concomitant]
     Dates: start: 20111102, end: 20111107
  10. COAGULATION FACTOR VIII [Concomitant]
     Dates: start: 20111108, end: 20111115
  11. COAGULATION FACTOR VIII [Concomitant]
     Dates: start: 20111116, end: 20111130
  12. COAGULATION FACTOR VIII [Concomitant]
     Dates: start: 20111201

REACTIONS (3)
  - Haemarthrosis [Recovering/Resolving]
  - Liver function test abnormal [Not Recovered/Not Resolved]
  - Adjustment disorder [Recovering/Resolving]
